FAERS Safety Report 19421209 (Version 1)
Quarter: 2021Q2

REPORT INFORMATION
  Report Type: Spontaneous
  Country: CN (occurrence: CN)
  Receive Date: 20210615
  Receipt Date: 20210615
  Transmission Date: 20210717
  Serious: Yes (Hospitalization, Other)
  Sender: FDA-Public Use
  Company Number: CN-PFIZER INC-2021651160

PATIENT
  Age: 46 Year
  Sex: Male

DRUGS (2)
  1. OSIMERTINIB MESYLATE. [Concomitant]
     Active Substance: OSIMERTINIB MESYLATE
     Indication: LUNG NEOPLASM MALIGNANT
     Dosage: 80.000 MG, 1X/DAY
     Route: 048
     Dates: start: 20210330, end: 20210427
  2. PREGABALIN. [Suspect]
     Active Substance: PREGABALIN
     Indication: CANCER PAIN
     Dosage: 75 MG, 2X/DAY
     Route: 048
     Dates: start: 20210315, end: 20210427

REACTIONS (5)
  - Metastases to bone [Unknown]
  - Gastrointestinal ulcer [Unknown]
  - Pathological fracture [Unknown]
  - Off label use [Recovered/Resolved]
  - Upper gastrointestinal haemorrhage [Recovering/Resolving]

NARRATIVE: CASE EVENT DATE: 20210315
